FAERS Safety Report 25878338 (Version 1)
Quarter: 2025Q4

REPORT INFORMATION
  Report Type: Spontaneous
  Country: EU (occurrence: EU)
  Receive Date: 20251003
  Receipt Date: 20251003
  Transmission Date: 20260118
  Serious: Yes (Life-Threatening)
  Sender: RANBAXY
  Company Number: EU-SUN PHARMACEUTICAL INDUSTRIES LTD-2025RR-529884

PATIENT
  Age: 25 Year
  Sex: Female

DRUGS (2)
  1. PREGABALIN [Suspect]
     Active Substance: PREGABALIN
     Indication: Intentional product misuse
     Dosage: 3000 MILLIGRAM
     Route: 048
     Dates: start: 20250529, end: 20250529
  2. CLONAZEPAM [Suspect]
     Active Substance: CLONAZEPAM
     Indication: Intentional product misuse
     Dosage: 14 FEMTOMOLE PER MILLIGRAM
     Route: 048
     Dates: start: 20250529, end: 20250529

REACTIONS (2)
  - Poisoning deliberate [Recovered/Resolved]
  - Coma [Recovered/Resolved]

NARRATIVE: CASE EVENT DATE: 20250529
